FAERS Safety Report 10056325 (Version 3)
Quarter: 2014Q2

REPORT INFORMATION
  Report Type: Spontaneous
  Country: JP (occurrence: JP)
  Receive Date: 20140403
  Receipt Date: 20140415
  Transmission Date: 20141212
  Serious: Yes (Hospitalization)
  Sender: FDA-Public Use
  Company Number: PHJP2014JP000567

PATIENT
  Age: 10 Year
  Sex: Female
  Weight: 34 kg

DRUGS (2)
  1. TEGRETOL TAB 200MG [Suspect]
     Indication: GENERALISED TONIC-CLONIC SEIZURE
     Dosage: 200 MG, QD
     Route: 048
     Dates: start: 20140206, end: 20140216
  2. VALPROIC ACID [Interacting]
     Dosage: UNK UKN, UNK
     Route: 048

REACTIONS (6)
  - Drug eruption [Recovered/Resolved]
  - Generalised erythema [Unknown]
  - Eczema [Unknown]
  - Pyrexia [Unknown]
  - Drug interaction [Unknown]
  - Anticonvulsant drug level below therapeutic [Unknown]
